FAERS Safety Report 21728304 (Version 1)
Quarter: 2022Q4

REPORT INFORMATION
  Report Type: Spontaneous
  Country: ES (occurrence: ES)
  Receive Date: 20221214
  Receipt Date: 20221214
  Transmission Date: 20230113
  Serious: Yes (Other)
  Sender: FDA-Public Use
  Company Number: ES-PFIZER INC-PV202200118691

PATIENT
  Age: 38 Year
  Sex: Female

DRUGS (3)
  1. METHOTREXATE SODIUM [Suspect]
     Active Substance: METHOTREXATE SODIUM
     Indication: Alopecia areata
     Dosage: 15 MG /0.3 ML, 2X/WEEK
     Route: 026
  2. DEXAMETHASONE [Concomitant]
     Active Substance: DEXAMETHASONE
     Indication: Alopecia areata
     Dosage: 2 MG, 2X/WEEK
     Route: 023
  3. PREDNISONE [Concomitant]
     Active Substance: PREDNISONE
     Indication: Alopecia areata
     Dosage: EVERY 3 WEEKS
     Route: 023

REACTIONS (4)
  - Pain [Unknown]
  - Erythema [Unknown]
  - Skin hyperpigmentation [Unknown]
  - Off label use [Unknown]
